FAERS Safety Report 25928878 (Version 2)
Quarter: 2025Q4

REPORT INFORMATION
  Report Type: Report from Study
  Country: JP (occurrence: JP)
  Receive Date: 20251016
  Receipt Date: 20251028
  Transmission Date: 20260118
  Serious: Yes (Hospitalization)
  Sender: RADIUS PHARM
  Company Number: JP-RADIUS HEALTH INC.-JP-RADIUS-25045855

PATIENT
  Age: 72 Year
  Sex: Female

DRUGS (1)
  1. ABALOPARATIDE [Suspect]
     Active Substance: ABALOPARATIDE
     Indication: Osteoporosis
     Dosage: 80 MICROGRAM, QD
     Route: 058
     Dates: start: 20250208, end: 2025

REACTIONS (6)
  - Physical deconditioning [Unknown]
  - Injection site erythema [Recovered/Resolved]
  - Injection site haemorrhage [Recovered/Resolved]
  - Accidental exposure to product [Unknown]
  - Injection site pain [Unknown]
  - Injection site pain [Unknown]

NARRATIVE: CASE EVENT DATE: 20250101
